FAERS Safety Report 6884976-9 (Version None)
Quarter: 2010Q3

REPORT INFORMATION
  Report Type: 
  Country: None (occurrence: None)
  Receive Date: 20100727
  Receipt Date: 20100716
  Transmission Date: 20110219
  Serious: Yes (Other)
  Sender: FDA-Public Use
  Company Number: 015678

PATIENT
  Age: 31 Year
  Sex: Female
  Weight: 72 kg

DRUGS (3)
  1. LACOSAMIDE [Suspect]
  2. DILANTIN [Concomitant]
  3. LAMICTAL [Concomitant]

REACTIONS (9)
  - ACCIDENTAL OVERDOSE [None]
  - BALANCE DISORDER [None]
  - CONVULSION [None]
  - DIZZINESS [None]
  - DYSPNOEA [None]
  - ENURESIS [None]
  - EYE MOVEMENT DISORDER [None]
  - FALL [None]
  - VOMITING [None]
